FAERS Safety Report 8078290-6 (Version None)
Quarter: 2012Q1

REPORT INFORMATION
  Report Type: 
  Country: None (occurrence: None)
  Receive Date: 20120123
  Receipt Date: 20120113
  Transmission Date: 20120608
  Serious: Yes (Hospitalization)
  Sender: FDA-Public Use
  Company Number: 2012SP002190

PATIENT
  Age: 74 Year
  Sex: Female

DRUGS (7)
  1. CLONAZEPAM [Suspect]
     Indication: PRODUCT USED FOR UNKNOWN INDICATION
     Dosage: PO
     Route: 048
     Dates: end: 20111001
  2. AMITRIPTYLINE HCL [Suspect]
     Indication: PRODUCT USED FOR UNKNOWN INDICATION
     Dosage: PO
     Route: 048
     Dates: end: 20111001
  3. MICARDIS HCT [Concomitant]
  4. EUPRESSYL [Concomitant]
  5. EXELON [Concomitant]
  6. MIRTAZAPINE [Suspect]
     Indication: DEPRESSION
     Dosage: 45;30 MG, QD, QPM
     Dates: start: 20110801
  7. HALDOL [Suspect]
     Indication: PRODUCT USED FOR UNKNOWN INDICATION
     Dosage: PO
     Route: 048
     Dates: end: 20111001

REACTIONS (5)
  - SOMNOLENCE [None]
  - DISTURBANCE IN ATTENTION [None]
  - COGNITIVE DISORDER [None]
  - BACK PAIN [None]
  - PSYCHOMOTOR RETARDATION [None]
